FAERS Safety Report 14849894 (Version 5)
Quarter: 2018Q4

REPORT INFORMATION
  Report Type: Report from Study
  Country: US (occurrence: US)
  Receive Date: 20180504
  Receipt Date: 20181205
  Transmission Date: 20190204
  Serious: No
  Sender: FDA-Public Use
  Company Number: US-ALEXION PHARMACEUTICALS INC.-A201805133

PATIENT
  Sex: Female

DRUGS (1)
  1. STRENSIQ [Suspect]
     Active Substance: ASFOTASE ALFA
     Indication: HYPOPHOSPHATASIA
     Dosage: UNK
     Route: 065

REACTIONS (11)
  - Injection site mass [Unknown]
  - Tendonitis [Unknown]
  - Muscle spasms [Unknown]
  - Feeling abnormal [Unknown]
  - Injection site haemorrhage [Unknown]
  - Drug ineffective [Unknown]
  - Pain [Unknown]
  - Keratosis pilaris [Unknown]
  - Peripheral swelling [Unknown]
  - Anxiety [Unknown]
  - Injection site pain [Unknown]
